FAERS Safety Report 14008181 (Version 1)
Quarter: 2017Q3

REPORT INFORMATION
  Report Type: Spontaneous
  Country: US (occurrence: None)
  Receive Date: 20170924
  Receipt Date: 20170924
  Transmission Date: 20171128
  Serious: Yes (Hospitalization)
  Sender: FDA-Public Use
  Company Number: None

PATIENT
  Age: 70 Year
  Sex: Female
  Weight: 68 kg

DRUGS (2)
  1. DOXIL [Suspect]
     Active Substance: DOXORUBICIN HYDROCHLORIDE
     Dates: end: 20170905
  2. CARBOPLATIN. [Suspect]
     Active Substance: CARBOPLATIN
     Dates: end: 20170905

REACTIONS (8)
  - Hypocalcaemia [None]
  - Pyrexia [None]
  - Diarrhoea [None]
  - Hypomagnesaemia [None]
  - Dyspnoea [None]
  - Hypokalaemia [None]
  - Clostridium test positive [None]
  - Anaemia [None]

NARRATIVE: CASE EVENT DATE: 20170918
